FAERS Safety Report 6295969 (Version 34)
Quarter: 2013Q4

REPORT INFORMATION
  Report Type: Spontaneous
  Country: US (occurrence: US)
  Receive Date: 20070425
  Receipt Date: 20131209
  Transmission Date: 20140711
  Serious: Yes (Death, Hospitalization, Other)
  Sender: FDA-Public Use
  Company Number: PHEH2007US05483

PATIENT
  Age: 43 Year
  Sex: Female
  Weight: 93 kg

DRUGS (56)
  1. AREDIA [Suspect]
     Dosage: 90 MG, QMO
     Route: 042
     Dates: start: 19980627
  2. ZOMETA [Suspect]
     Dates: start: 200112
  3. BEXTRA [Concomitant]
  4. COUMADIN ^BOOTS^ [Concomitant]
     Dosage: 2.5 MG, DAILY
  5. LORTAB [Concomitant]
     Dosage: 7.5 MG, PRN
  6. AMBIEN [Concomitant]
     Dosage: 10 MG
  7. PRILOSEC [Concomitant]
     Dosage: 20 MG, PRN
  8. MIRALAX [Concomitant]
  9. POTASSIUM [Concomitant]
  10. MS CONTIN [Concomitant]
     Dosage: 30 MG
  11. CHROMAGEN [Concomitant]
  12. PROCRIT                            /00909301/ [Concomitant]
  13. SENOKOT                                 /UNK/ [Concomitant]
  14. DECADRON                                /CAN/ [Concomitant]
  15. LIPITOR [Concomitant]
  16. DURAGESIC [Concomitant]
  17. LEVAQUIN [Concomitant]
     Dosage: 500 MG, DAILY
  18. COMPAZINE [Concomitant]
  19. PEPCID [Concomitant]
     Dosage: 40 MG, PRN
  20. K-DUR [Concomitant]
  21. XANAX [Concomitant]
     Dosage: 0.5 MG
     Route: 048
  22. TYLENOL [Concomitant]
  23. SEPTRA DS [Concomitant]
  24. CIPRO [Concomitant]
  25. INTERFERON [Concomitant]
  26. FLAGYL [Concomitant]
     Dosage: 250 MG, TID
  27. PROZAC [Concomitant]
     Dosage: 20 MG
  28. LOMOTIL [Concomitant]
     Dosage: 5 MG
  29. BENADRYL ^PFIZER WARNER-LAMBERT^ [Concomitant]
     Dosage: 25 MG
  30. MORPHINE [Concomitant]
  31. ESTRACE ^BRISTOL-MYERS SQUIBB^ [Concomitant]
     Dosage: 1 MG, QHS
     Route: 048
  32. NYSTATIN [Concomitant]
     Dosage: 5 ML
     Route: 048
  33. MAGNESIUM SULFATE [Concomitant]
  34. CHLORHEXIDINE [Concomitant]
     Dosage: 15 ML, Q12H
  35. ZOVIRAX [Concomitant]
     Dosage: 200 MG, Q12H
     Route: 048
  36. ZYLOPRIM [Concomitant]
     Dosage: 300 MG, QD
     Route: 048
  37. PHENERGAN ^AVENTIS PHARMA^ [Concomitant]
     Dosage: 25 MG, Q6H
  38. SODIUM CHLORIDE [Concomitant]
  39. LASIX [Concomitant]
     Dosage: 20 MG, PRN
     Route: 042
  40. PERCOCET [Concomitant]
     Route: 048
  41. PERIDEX [Concomitant]
  42. ACYCLOVIR [Concomitant]
     Route: 048
  43. ZOFRAN [Concomitant]
     Route: 048
  44. ALLOPURINOL [Concomitant]
     Dosage: 300 MG
     Route: 048
  45. ACETAMINOPHEN [Concomitant]
     Dosage: 650 MG
     Route: 048
  46. PROMETHAZINE [Concomitant]
     Route: 042
  47. ALKERAN [Concomitant]
     Dosage: 172 MG
  48. DIPHENHYDRAMINE [Concomitant]
     Route: 042
  49. DOCUSATE [Concomitant]
     Dosage: 100 MG, BID
  50. PENTAZOCINE [Concomitant]
     Route: 042
  51. ATROPIN [Concomitant]
     Route: 048
  52. SIMETHICONE [Concomitant]
     Route: 048
  53. DICYCLOMINE [Concomitant]
     Route: 048
  54. FILGRASTIM [Concomitant]
  55. VINCRISTINE [Concomitant]
  56. ADRIAMYCIN [Concomitant]

REACTIONS (160)
  - Death [Fatal]
  - Hypokalaemia [Unknown]
  - Asthma [Recovered/Resolved]
  - Oesophageal candidiasis [Recovering/Resolving]
  - Oral pain [Recovering/Resolving]
  - Oesophageal pain [Unknown]
  - Plasma cell myeloma [Unknown]
  - Tumour pain [Unknown]
  - Azotaemia [Unknown]
  - Osteonecrosis of jaw [Unknown]
  - Injury [Unknown]
  - Pain [Not Recovered/Not Resolved]
  - Anxiety [Unknown]
  - Renal failure [Unknown]
  - Blood creatinine increased [Not Recovered/Not Resolved]
  - Breast mass [Unknown]
  - Pain in extremity [Unknown]
  - Oesophageal stenosis [Unknown]
  - Osteolysis [Unknown]
  - Dyspnoea [Unknown]
  - Light chain analysis increased [Unknown]
  - Hypertension [Unknown]
  - Pyrexia [Recovering/Resolving]
  - Blood alkaline phosphatase increased [Unknown]
  - Oral herpes [Unknown]
  - Oropharyngeal pain [Unknown]
  - Dysphagia [Unknown]
  - Chest pain [Unknown]
  - Compression fracture [Unknown]
  - Proteinuria [Unknown]
  - Nocturia [Unknown]
  - Back pain [Unknown]
  - Myalgia [Unknown]
  - Asthenia [Unknown]
  - Irritability [Unknown]
  - Musculoskeletal stiffness [Unknown]
  - Muscle spasms [Unknown]
  - Constipation [Unknown]
  - Arthralgia [Unknown]
  - Dyspepsia [Unknown]
  - Fatigue [Unknown]
  - Nausea [Unknown]
  - Breast pain [Unknown]
  - Breast tenderness [Unknown]
  - Osteopenia [Unknown]
  - Hyperlipidaemia [Unknown]
  - Neck pain [Unknown]
  - Musculoskeletal pain [Unknown]
  - Pancytopenia [Unknown]
  - Thrombocytopenia [Unknown]
  - Neutropenia [Unknown]
  - Bone pain [Unknown]
  - Bronchitis [Unknown]
  - Bronchopneumonia [Unknown]
  - Renal impairment [Unknown]
  - Renal failure chronic [Unknown]
  - Sinus tachycardia [Unknown]
  - Vena cava thrombosis [Unknown]
  - Sleep apnoea syndrome [Unknown]
  - Streptococcal sepsis [Unknown]
  - Superior vena cava syndrome [Unknown]
  - Glomerulonephritis [Unknown]
  - Oesophageal spasm [Unknown]
  - Rectal haemorrhage [Unknown]
  - Hypothyroidism [Unknown]
  - Sensation of foreign body [Unknown]
  - Odynophagia [Unknown]
  - Fall [Unknown]
  - Migraine [Unknown]
  - Neuropathy peripheral [Unknown]
  - Lumbar radiculopathy [Unknown]
  - Restless legs syndrome [Unknown]
  - Dehydration [Unknown]
  - Glomerulosclerosis [Unknown]
  - Renal failure acute [Unknown]
  - Immunodeficiency [Unknown]
  - Oedema peripheral [Unknown]
  - Decreased appetite [Unknown]
  - Lactose intolerance [Unknown]
  - Pneumonia [Unknown]
  - Urinary retention [Unknown]
  - Leukopenia [Unknown]
  - Renal tubular necrosis [Unknown]
  - Hypogammaglobulinaemia [Unknown]
  - Tubulointerstitial nephritis [Unknown]
  - Gastritis [Unknown]
  - Muscular weakness [Unknown]
  - Gastroduodenitis [Unknown]
  - Metabolic acidosis [Unknown]
  - Tricuspid valve incompetence [Unknown]
  - Blood pressure increased [Unknown]
  - Diarrhoea [Unknown]
  - Contusion [Unknown]
  - Foot deformity [Unknown]
  - Myofascial pain syndrome [Unknown]
  - Head injury [Unknown]
  - Abdominal pain [Unknown]
  - Insomnia [Unknown]
  - Presyncope [Unknown]
  - Gastroenteritis bacterial [Unknown]
  - Myocardial infarction [Unknown]
  - Swelling face [Unknown]
  - Local swelling [Unknown]
  - Splenic calcification [Unknown]
  - Renal atrophy [Unknown]
  - Lordosis [Recovered/Resolved]
  - Sinus disorder [Unknown]
  - Cardiomegaly [Unknown]
  - Ascites [Unknown]
  - Generalised oedema [Unknown]
  - Cerebral atrophy [Unknown]
  - Pleural effusion [Unknown]
  - Atelectasis [Unknown]
  - Collateral circulation [Unknown]
  - Splenic granuloma [Unknown]
  - Hepatic calcification [Unknown]
  - Granulomatous liver disease [Unknown]
  - Bone disorder [Unknown]
  - Granuloma [Unknown]
  - Abdominal pain upper [Unknown]
  - Deep vein thrombosis [Unknown]
  - Sinusitis bacterial [Unknown]
  - Lymph node calcification [Unknown]
  - Fistula [Unknown]
  - Myelodysplastic syndrome [Unknown]
  - Colitis [Unknown]
  - Sinusitis [Unknown]
  - Influenza like illness [Unknown]
  - Viral infection [Unknown]
  - Venous stenosis [Unknown]
  - Spinal osteoarthritis [Unknown]
  - Ingrowing nail [Unknown]
  - Cystitis [Unknown]
  - Subdural haematoma [Unknown]
  - Cardiac failure congestive [Unknown]
  - Cardiomyopathy [Unknown]
  - Staphylococcal sepsis [Unknown]
  - Impaired gastric emptying [Unknown]
  - Pulmonary granuloma [Unknown]
  - Pulmonary calcification [Unknown]
  - Pulmonary fibrosis [Unknown]
  - Lung infiltration [Recovered/Resolved]
  - Bone cyst [Unknown]
  - Bone lesion [Unknown]
  - Dental caries [Unknown]
  - Gingival bleeding [Unknown]
  - Eye swelling [Unknown]
  - Thyroid neoplasm [Unknown]
  - Macroglossia [Unknown]
  - Snoring [Unknown]
  - Retching [Unknown]
  - Tooth loss [Unknown]
  - Bacteraemia [Unknown]
  - Mucosal inflammation [Unknown]
  - Hyperparathyroidism secondary [Unknown]
  - Fluid overload [Unknown]
  - Superior vena cava stenosis [Unknown]
  - Mitral valve incompetence [Unknown]
  - Hypercholesterolaemia [Unknown]
  - Swelling [Unknown]
